FAERS Safety Report 17825101 (Version 1)
Quarter: 2020Q2

REPORT INFORMATION
  Report Type: Spontaneous
  Country: US (occurrence: US)
  Receive Date: 20200526
  Receipt Date: 20200526
  Transmission Date: 20200714
  Serious: No
  Sender: FDA-Public Use
  Company Number: US-SA-2020SA134303

PATIENT
  Age: 93 Year
  Sex: Female

DRUGS (1)
  1. RENVELA [Suspect]
     Active Substance: SEVELAMER CARBONATE
     Indication: BLOOD PHOSPHORUS INCREASED
     Dosage: UNK

REACTIONS (3)
  - Dysphagia [Unknown]
  - Blood phosphorus increased [Unknown]
  - Malaise [Unknown]
